FAERS Safety Report 8464378-4 (Version None)
Quarter: 2012Q2

REPORT INFORMATION
  Report Type: 
  Country: None (occurrence: None)
  Receive Date: 20120626
  Receipt Date: 20120618
  Transmission Date: 20120825
  Serious: Yes (Hospitalization)
  Sender: FDA-Public Use
  Company Number: US-BRISTOL-MYERS SQUIBB COMPANY-16198194

PATIENT
  Age: 48 Year
  Sex: Male

DRUGS (12)
  1. ALLOPURINOL [Concomitant]
     Route: 048
  2. GLUCOPHAGE [Suspect]
     Indication: TYPE 2 DIABETES MELLITUS
     Dosage: GLUCOPHAGE XR
     Route: 048
  3. COLESTIPOL HYDROCHLORIDE [Concomitant]
     Route: 048
  4. ASPIRIN [Concomitant]
     Dosage: =}100MG
     Route: 048
  5. LISINOPRIL [Concomitant]
     Route: 048
  6. CRESTOR [Concomitant]
     Route: 048
  7. ROSUVASTATIN [Concomitant]
  8. PLACEBO [Suspect]
     Indication: TYPE 2 DIABETES MELLITUS
     Dates: start: 20110929, end: 20111022
  9. OMEPRAZOLE [Concomitant]
     Route: 048
  10. BLINDED: SAXAGLIPTIN [Suspect]
     Indication: TYPE 2 DIABETES MELLITUS
     Dates: start: 20110929, end: 20111022
  11. NITROGLYCERIN [Concomitant]
     Route: 060
  12. METOPROLOL [Concomitant]
     Route: 048

REACTIONS (1)
  - PANCREATITIS [None]
